FAERS Safety Report 16924665 (Version 2)
Quarter: 2019Q4

REPORT INFORMATION
  Report Type: Spontaneous
  Country: US (occurrence: US)
  Receive Date: 20191016
  Receipt Date: 20191216
  Transmission Date: 20200122
  Serious: No
  Sender: FDA-Public Use
  Company Number: US-PFIZER INC-2019441135

PATIENT
  Age: 71 Year
  Sex: Female

DRUGS (25)
  1. HYDRODIURIL [Concomitant]
     Active Substance: HYDROCHLOROTHIAZIDE
     Indication: BLOOD PRESSURE MEASUREMENT
     Dosage: 25 MG, DAILY
  2. COZAAR [Concomitant]
     Active Substance: LOSARTAN POTASSIUM
     Indication: BLOOD PRESSURE ABNORMAL
     Dosage: 100 MG, 1X/DAY
  3. PREDNISONE [PREDNISONE ACETATE] [Concomitant]
     Active Substance: PREDNISONE ACETATE
     Dosage: 40 MG, UNK (2 TABLETS DAILY FOR 3 DAYS)
  4. FLONASE [Concomitant]
     Active Substance: FLUTICASONE PROPIONATE
     Indication: SEASONAL ALLERGY
     Dosage: 2 DF, 2X/DAY (USE 1 SPRAY IN EACH NOSTRIL TWICE DAILY )
     Route: 045
  5. PREDNISONE [PREDNISONE ACETATE] [Concomitant]
     Active Substance: PREDNISONE ACETATE
     Dosage: 60 MG, UNK (3 TABLETS DAILY FOR 2 DAYS)
  6. FLORASTOR [LACTOBACILLUS ACIDOPHILUS] [Concomitant]
     Indication: PROBIOTIC THERAPY
     Dosage: 250 MG, UNK
  7. CARDIZEM CD [Concomitant]
     Active Substance: DILTIAZEM HYDROCHLORIDE
     Indication: BLOOD PRESSURE ABNORMAL
     Dosage: 360 MG, 1X/DAY
     Route: 048
  8. VITAMIN D3 [Concomitant]
     Active Substance: CHOLECALCIFEROL
     Dosage: 1000 IU, DAILY
     Route: 048
  9. METHOTREXATE. [Concomitant]
     Active Substance: METHOTREXATE
     Dosage: 17.5 MG, UNK  (2.5 MG ORAL TABLET TAKE 7 TABLETS PER WEEK)
     Route: 048
  10. PREDNISONE [PREDNISONE ACETATE] [Concomitant]
     Active Substance: PREDNISONE ACETATE
     Dosage: 20 MG, UNK (3 DAYS)
  11. ZANTAC [Concomitant]
     Active Substance: RANITIDINE HYDROCHLORIDE
     Indication: GASTROOESOPHAGEAL REFLUX DISEASE
     Dosage: 150 MG, AS NEEDED(TAKE 1 TABLET TWICE DAILY AS NEEDED )
  12. POTASSIUM [Concomitant]
     Active Substance: POTASSIUM
     Dosage: 75 MG, DAILY
  13. PROVENTIL HFA [Concomitant]
     Active Substance: ALBUTEROL SULFATE
     Indication: WHEEZING
     Dosage: 2 DF, AS NEEDED [108(90 BASE) MCG/ACT INHALER]
  14. TIAZAC [DILTIAZEM HYDROCHLORIDE] [Concomitant]
     Indication: BLOOD PRESSURE ABNORMAL
     Dosage: 360 MG, DAILY
  15. SINGULAIR [Concomitant]
     Active Substance: MONTELUKAST SODIUM
     Dosage: 10 MG, 1X/DAY(TAKE 10 MG BY MOUTH NIGHTLY)
     Route: 048
  16. ZANAFLEX [Concomitant]
     Active Substance: TIZANIDINE HYDROCHLORIDE
     Indication: MUSCLE SPASMS
     Dosage: 4 MG, AS NEEDED(TAKE ONE CAPSULE TWICE DAILY AS NEEDED )
     Route: 048
     Dates: start: 20140108
  17. VITAMIN B COMPLEX [Concomitant]
     Active Substance: CYANOCOBALAMIN\DEXPANTHENOL\NIACINAMIDE\PYRIDOXINE HYDROCHLORIDE\RIBOFLAVIN 5^-PHOSPHATE SODIUM\THIAMINE HYDROCHLORIDE\VITAMIN B COMPLEX
     Dosage: 1 DF, DAILY
  18. XELJANZ [Suspect]
     Active Substance: TOFACITINIB CITRATE
     Indication: RHEUMATOID ARTHRITIS
     Dosage: 5 MG, 2X/DAY
     Route: 048
     Dates: start: 2019
  19. FOSAMAX [Concomitant]
     Active Substance: ALENDRONATE SODIUM
     Dosage: 70 MG, WEEKLY
     Route: 048
  20. LIPITOR [Concomitant]
     Active Substance: ATORVASTATIN CALCIUM
     Indication: BLOOD CHOLESTEROL ABNORMAL
     Dosage: 40 MG, 1X/DAY(TAKE 1 TABLET EVERY EVENING )
  21. VENTOLIN HFA [Concomitant]
     Active Substance: ALBUTEROL SULFATE
     Indication: WHEEZING
     Dosage: 2 DF, AS NEEDED [108(90 BASE) MCG/ACT INHALER]
  22. PROZAC [Concomitant]
     Active Substance: FLUOXETINE HYDROCHLORIDE
     Indication: DEPRESSION
     Dosage: 40 MG, 1X/DAY
  23. ADVAIR HFA [Concomitant]
     Active Substance: FLUTICASONE PROPIONATE\SALMETEROL XINAFOATE
     Indication: ASTHMA
     Dosage: 1 DF, 2X/DAY (INHALE 1 PUFF 2 TIMES A DAY) [250-50MCG]
  24. OMEPRAZOLE. [Concomitant]
     Active Substance: OMEPRAZOLE
     Indication: GASTROOESOPHAGEAL REFLUX DISEASE
     Dosage: 20 MG, DAILY
  25. ULTRAM [Concomitant]
     Active Substance: TRAMADOL HYDROCHLORIDE
     Dosage: 50 MG, UNK

REACTIONS (1)
  - Inflammation [Not Recovered/Not Resolved]

NARRATIVE: CASE EVENT DATE: 201909
